FAERS Safety Report 9009669 (Version 1)
Quarter: 2013Q1

REPORT INFORMATION
  Report Type: Spontaneous
  Country: IN (occurrence: IN)
  Receive Date: 20130110
  Receipt Date: 20130110
  Transmission Date: 20140127
  Serious: Yes (Death)
  Sender: FDA-Public Use
  Company Number: IN-ASTRAZENECA-2013SE01495

PATIENT
  Age: 65 Year
  Sex: Male
  Weight: 70 kg

DRUGS (3)
  1. BRILINTA [Suspect]
     Indication: PERCUTANEOUS CORONARY INTERVENTION
     Route: 048
     Dates: start: 20121218, end: 20121227
  2. T. TAZLOC H [Concomitant]
     Indication: HYPERTENSION
     Route: 048
     Dates: start: 201112
  3. T. STAMLO [Concomitant]
     Indication: HYPERTENSION
     Route: 048
     Dates: start: 201112

REACTIONS (2)
  - Dyspnoea [Fatal]
  - Acute hepatic failure [Fatal]
